FAERS Safety Report 5469827-1 (Version None)
Quarter: 2007Q3

REPORT INFORMATION
  Report Type: 
  Country: None (occurrence: None)
  Receive Date: 20070927
  Receipt Date: 20070625
  Transmission Date: 20080115
  Serious: Yes (Other)
  Sender: FDA-Public Use
  Company Number: US-BRISTOL-MYERS SQUIBB COMPANY-13817523

PATIENT
  Sex: Male
  Weight: 91 kg

DRUGS (7)
  1. SPRYCEL [Suspect]
     Indication: CHRONIC MYELOID LEUKAEMIA
     Route: 048
     Dates: start: 20070401
  2. ATENOLOL [Concomitant]
  3. MINOCYCLINE HCL [Concomitant]
  4. BACTRIM [Concomitant]
  5. PROCRIT [Concomitant]
  6. DARVOCET [Concomitant]
  7. TYLENOL (CAPLET) [Concomitant]

REACTIONS (4)
  - HAEMOGLOBIN DECREASED [None]
  - HAEMORRHAGE [None]
  - POLLAKIURIA [None]
  - PYREXIA [None]
